FAERS Safety Report 15683116 (Version 1)
Quarter: 2018Q4

REPORT INFORMATION
  Report Type: Report from Study
  Country: DK (occurrence: DK)
  Receive Date: 20181204
  Receipt Date: 20181204
  Transmission Date: 20190205
  Serious: Yes (Disabling)
  Sender: FDA-Public Use
  Company Number: DK-TOLMAR, INC.-2018DK012003

PATIENT

DRUGS (13)
  1. IMOCLONE [Concomitant]
     Active Substance: ZOPICLONE
  2. KODIMAGNYL IKKE STOPPENDE [Concomitant]
  3. ENALAPRIL SANDOZ [Concomitant]
     Active Substance: ENALAPRIL
     Dosage: UNK, UNK
     Dates: start: 20140213
  4. HJERDYL [Concomitant]
     Active Substance: ASPIRIN
     Dosage: UNK, UNK
     Dates: start: 20140311
  5. ELIGARD [Suspect]
     Active Substance: LEUPROLIDE ACETATE
     Indication: PROSTATE CANCER
     Dosage: 45 MG, EVERY 6 MONTHS
     Route: 058
     Dates: start: 20181003, end: 20181003
  6. METOPROLOLSUCCINAT HEXAL [Concomitant]
     Active Substance: METOPROLOL SUCCINATE
     Dosage: UNK
     Route: 065
     Dates: start: 20131227
  7. ROSUVASTATIN. [Concomitant]
     Active Substance: ROSUVASTATIN
     Dosage: UNK, UNK
     Dates: start: 20140213
  8. RIZATRIPTAN. [Concomitant]
     Active Substance: RIZATRIPTAN
  9. EUCREAS [Concomitant]
     Active Substance: METFORMIN HYDROCHLORIDE\VILDAGLIPTIN
     Dosage: UNK, UNK
     Route: 065
     Dates: start: 20140311
  10. GLIMEPIRID SANDOZ [Concomitant]
     Active Substance: GLIMEPIRIDE
     Dosage: UNK, UNK
     Dates: start: 20140120
  11. LATANOPROST SANDOZ [Concomitant]
     Active Substance: LATANOPROST
     Dosage: UNK, UNK
     Dates: start: 20130716
  12. FORXIGA [Concomitant]
     Active Substance: DAPAGLIFLOZIN
     Dosage: UNK, UNK
     Dates: start: 20150224
  13. PANTOPRAZOL SANDOZ [Concomitant]
     Active Substance: PANTOPRAZOLE SODIUM
     Dosage: UNK, UNK
     Dates: start: 20161220

REACTIONS (1)
  - Diarrhoea [Not Recovered/Not Resolved]

NARRATIVE: CASE EVENT DATE: 20181003
